FAERS Safety Report 8176858-X (Version None)
Quarter: 2012Q1

REPORT INFORMATION
  Report Type: 
  Country: None (occurrence: None)
  Receive Date: 20120301
  Receipt Date: 20120224
  Transmission Date: 20120608
  Serious: Yes (Hospitalization)
  Sender: FDA-Public Use
  Company Number: US-VERTEX PHARMACEUTICALS INC.-AE-2012-002070

PATIENT
  Sex: Male
  Weight: 110 kg

DRUGS (24)
  1. SODIUM CHLORIDE CONCENTRATED INJ [Concomitant]
  2. BACTRIM DS [Concomitant]
  3. ALBUTEROL [Concomitant]
  4. FLONASE [Concomitant]
  5. CALCIUM CARBONATE [Concomitant]
  6. VITAMIN D [Concomitant]
  7. VITAMIN K TAB [Concomitant]
  8. ALLOPURINOL [Concomitant]
  9. ACETAMINOPHEN [Concomitant]
  10. IVACAFTOR [Suspect]
     Route: 048
     Dates: start: 20120221
  11. AZITHROMYCIN [Concomitant]
  12. IVACAFTOR [Suspect]
     Indication: CYSTIC FIBROSIS
     Dates: start: 20110805, end: 20120209
  13. SYMBICORT [Concomitant]
  14. PULMOZYME [Concomitant]
  15. OMEPRAZOLE [Concomitant]
  16. PREDNISONE [Concomitant]
  17. FLOVENT [Concomitant]
  18. CREON [Concomitant]
  19. ZOLPIDEM [Concomitant]
  20. MAGNESIUM HYDROXIDE TAB [Concomitant]
  21. VITAMIN E [Concomitant]
  22. INHALED CAYSTON [Concomitant]
  23. SOURCE CF [Concomitant]
  24. CIPROFLOXACIN [Concomitant]

REACTIONS (2)
  - INFECTIVE PULMONARY EXACERBATION OF CYSTIC FIBROSIS [None]
  - GASTROENTERITIS VIRAL [None]
